FAERS Safety Report 6967328-2 (Version None)
Quarter: 2010Q3

REPORT INFORMATION
  Report Type: 
  Country: None (occurrence: None)
  Receive Date: 20100907
  Receipt Date: 20100826
  Transmission Date: 20110219
  Serious: Yes (Other)
  Sender: FDA-Public Use
  Company Number: DE-BAYER-201037039GPV

PATIENT

DRUGS (1)
  1. INTERFERON [Suspect]
     Indication: MULTIPLE SCLEROSIS

REACTIONS (4)
  - AUTOIMMUNE HEPATITIS [None]
  - INFLAMMATORY PSEUDOTUMOUR [None]
  - MIXED CONNECTIVE TISSUE DISEASE [None]
  - SYSTEMIC INFLAMMATORY RESPONSE SYNDROME [None]
